FAERS Safety Report 9959773 (Version 1)
Quarter: 2014Q1

REPORT INFORMATION
  Report Type: Spontaneous
  Country: US (occurrence: US)
  Receive Date: 20140305
  Receipt Date: 20140305
  Transmission Date: 20141002
  Serious: No
  Sender: FDA-Public Use
  Company Number: US-ABBVIE-13P-163-1105158-00

PATIENT
  Age: 28 Year
  Sex: Female
  Weight: 49.49 kg

DRUGS (6)
  1. HUMIRA [Suspect]
     Indication: HIDRADENITIS
     Route: 058
     Dates: start: 20130607, end: 20130607
  2. MINOCYCLINE [Concomitant]
     Indication: HIDRADENITIS
  3. IBUPROFEN [Concomitant]
     Indication: PRODUCT USED FOR UNKNOWN INDICATION
  4. SILVADENE [Concomitant]
     Indication: HIDRADENITIS
  5. SPIRONOLACTONE [Concomitant]
     Indication: HIDRADENITIS
  6. UNKNOWN BIRTH CONTROL [Concomitant]
     Indication: CONTRACEPTION

REACTIONS (2)
  - Migraine [Recovered/Resolved]
  - Vision blurred [Recovered/Resolved]
